FAERS Safety Report 21015692 (Version 1)
Quarter: 2022Q2

REPORT INFORMATION
  Report Type: Spontaneous
  Country: AT (occurrence: AT)
  Receive Date: 20220628
  Receipt Date: 20220628
  Transmission Date: 20220721
  Serious: Yes (Death, Hospitalization)
  Sender: FDA-Public Use
  Company Number: AT-ABBVIE-22K-009-4448527-00

PATIENT
  Sex: Male

DRUGS (12)
  1. VENETOCLAX [Suspect]
     Active Substance: VENETOCLAX
     Indication: Acute myeloid leukaemia
     Dosage: FIRST CYCLE
     Route: 048
     Dates: start: 202106, end: 202106
  2. VENETOCLAX [Suspect]
     Active Substance: VENETOCLAX
     Dosage: SECOND CYCLE
     Route: 048
     Dates: start: 202107, end: 202107
  3. VENETOCLAX [Suspect]
     Active Substance: VENETOCLAX
     Dosage: THIRD CYCLE
     Route: 048
     Dates: start: 202108, end: 202108
  4. VENETOCLAX [Suspect]
     Active Substance: VENETOCLAX
     Dosage: FOURTH CYCLE
     Route: 048
     Dates: start: 202109, end: 202109
  5. VENETOCLAX [Suspect]
     Active Substance: VENETOCLAX
     Dosage: EIGHTH CYCLE
     Route: 048
     Dates: start: 202201, end: 202201
  6. VENETOCLAX [Suspect]
     Active Substance: VENETOCLAX
     Route: 048
     Dates: start: 202202, end: 2022
  7. VIDAZA [Concomitant]
     Active Substance: AZACITIDINE
     Indication: Acute myeloid leukaemia
     Dosage: FIRST CYCLE
     Route: 065
     Dates: start: 202106, end: 202106
  8. VIDAZA [Concomitant]
     Active Substance: AZACITIDINE
     Dosage: SECOND CYCLE
     Route: 065
     Dates: start: 202107, end: 202107
  9. VIDAZA [Concomitant]
     Active Substance: AZACITIDINE
     Dosage: THIRD CYCLE
     Route: 065
     Dates: start: 202108, end: 202108
  10. VIDAZA [Concomitant]
     Active Substance: AZACITIDINE
     Dosage: FOURTH CYCLE
     Route: 065
     Dates: start: 202109, end: 202109
  11. VIDAZA [Concomitant]
     Active Substance: AZACITIDINE
     Dosage: EIGHTH CYCLE
     Route: 065
     Dates: start: 202201, end: 202201
  12. VIDAZA [Concomitant]
     Active Substance: AZACITIDINE
     Route: 065
     Dates: start: 202202, end: 2022

REACTIONS (4)
  - Death [Fatal]
  - Infection [Unknown]
  - Blast cell count increased [Unknown]
  - Neutropenia [Not Recovered/Not Resolved]

NARRATIVE: CASE EVENT DATE: 20220101
